FAERS Safety Report 5691862-9 (Version None)
Quarter: 2008Q2

REPORT INFORMATION
  Report Type: 
  Country: None (occurrence: None)
  Receive Date: 20080401
  Receipt Date: 20080401
  Transmission Date: 20081010
  Serious: Yes (Hospitalization)
  Sender: FDA-Public Use
  Company Number: None

PATIENT
  Sex: Female
  Weight: 43.5 kg

DRUGS (1)
  1. METHOTREXATE [Suspect]
     Dosage: 30 MG

REACTIONS (5)
  - ENCEPHALOPATHY [None]
  - NUCLEAR MAGNETIC RESONANCE IMAGING BRAIN ABNORMAL [None]
  - PARALYSIS [None]
  - SPEECH DISORDER [None]
  - TONGUE PARALYSIS [None]
